FAERS Safety Report 11445886 (Version 1)
Quarter: 2015Q3

REPORT INFORMATION
  Report Type: Spontaneous
  Country: US (occurrence: US)
  Receive Date: 20150831
  Receipt Date: 20150831
  Transmission Date: 20151125
  Serious: No
  Sender: FDA-Public Use
  Company Number: US-ELI_LILLY_AND_COMPANY-US200808001908

PATIENT
  Sex: Female

DRUGS (3)
  1. THYROID HORMONES [Concomitant]
     Active Substance: UNSPECIFIED INGREDIENT
  2. OTHER HORMONES [Concomitant]
     Active Substance: UNSPECIFIED INGREDIENT
  3. CYMBALTA [Suspect]
     Active Substance: DULOXETINE HYDROCHLORIDE
     Indication: FATIGUE
     Dosage: 1 D/F, UNK
     Dates: start: 20080611

REACTIONS (6)
  - Somnolence [Unknown]
  - Nausea [Unknown]
  - Tension [Unknown]
  - Dermatitis [Unknown]
  - Dizziness [Unknown]
  - Feeling jittery [Unknown]

NARRATIVE: CASE EVENT DATE: 200806
